FAERS Safety Report 15180484 (Version 1)
Quarter: 2018Q3

REPORT INFORMATION
  Report Type: Spontaneous
  Country: US (occurrence: US)
  Receive Date: 20180623
  Receipt Date: 20180623
  Transmission Date: 20181010
  Serious: Yes (Hospitalization)
  Sender: FDA-Public Use
  Company Number: None

PATIENT
  Age: 12 Year
  Sex: Female
  Weight: 45 kg

DRUGS (10)
  1. DEXAMETHASONE. [Suspect]
     Active Substance: DEXAMETHASONE
     Dates: end: 20180312
  2. CYCLOPHOSPHAMIDE. [Suspect]
     Active Substance: CYCLOPHOSPHAMIDE
     Dates: end: 20180327
  3. VINCRISTINE SULFATE. [Suspect]
     Active Substance: VINCRISTINE SULFATE
     Dates: end: 20180508
  4. METHOTREXATE. [Suspect]
     Active Substance: METHOTREXATE
     Dates: end: 20180612
  5. CYTARABINE. [Suspect]
     Active Substance: CYTARABINE
     Dates: end: 20180406
  6. ONCASPAR [Suspect]
     Active Substance: PEGASPARGASE
     Dates: end: 20180410
  7. PREDNISONE. [Suspect]
     Active Substance: PREDNISONE
     Dates: end: 20180512
  8. MERCAPTOPURINE. [Suspect]
     Active Substance: MERCAPTOPURINE
     Dates: end: 20180616
  9. DOXORUBICIN HYDROCHLORIDE. [Suspect]
     Active Substance: DOXORUBICIN HYDROCHLORIDE
     Dates: end: 20180306
  10. THIOGUANINE (6?TG) [Suspect]
     Active Substance: THIOGUANINE ANHYDROUS
     Dates: end: 20180409

REACTIONS (14)
  - Stomatitis [None]
  - Petechiae [None]
  - Blister [None]
  - Wheezing [None]
  - Rash [None]
  - Lip blister [None]
  - Food refusal [None]
  - Refusal of treatment by patient [None]
  - Somnolence [None]
  - Oropharyngeal pain [None]
  - Condition aggravated [None]
  - Oxygen saturation decreased [None]
  - Pneumonia [None]
  - Therapy change [None]

NARRATIVE: CASE EVENT DATE: 20180618
